FAERS Safety Report 5065642-1 (Version None)
Quarter: 2006Q3

REPORT INFORMATION
  Report Type: 
  Country: None (occurrence: None)
  Receive Date: 20060714
  Receipt Date: 20060508
  Transmission Date: 20061208
  Serious: No
  Sender: FDA-Public Use
  Company Number: 2006SP002078

PATIENT
  Age: 43 Year
  Sex: Female
  Weight: 136.0791 kg

DRUGS (5)
  1. LUNESTA [Suspect]
     Indication: INSOMNIA
     Dosage: 3 MG;HS;ORAL
     Route: 048
     Dates: start: 20060504, end: 20060506
  2. WELLBUTRIN [Concomitant]
  3. DEPAKOTE [Concomitant]
  4. EFFEXOR [Concomitant]
  5. IBUPROFEN [Concomitant]

REACTIONS (1)
  - DYSGEUSIA [None]
